FAERS Safety Report 4584457-1 (Version None)
Quarter: 2005Q1

REPORT INFORMATION
  Report Type: 
  Country: None (occurrence: None)
  Receive Date: 20050125
  Receipt Date: 20041027
  Transmission Date: 20050727
  Serious: No
  Sender: FDA-Public Use
  Company Number: USA040978958

PATIENT
  Age: 88 Year
  Sex: Female

DRUGS (2)
  1. FORTEO [Suspect]
     Dates: start: 20040831, end: 20040917
  2. ACTONEL [Concomitant]

REACTIONS (4)
  - DIFFICULTY IN WALKING [None]
  - HEADACHE [None]
  - MYALGIA [None]
  - PARAESTHESIA [None]
